FAERS Safety Report 26126493 (Version 1)
Quarter: 2025Q4

REPORT INFORMATION
  Report Type: Spontaneous
  Country: US (occurrence: None)
  Receive Date: 20251205
  Receipt Date: 20251205
  Transmission Date: 20260118
  Serious: Yes (Hospitalization)
  Sender: FDA-CTU
  Company Number: None

PATIENT
  Sex: Female

DRUGS (11)
  1. COSENTYX [Suspect]
     Active Substance: SECUKINUMAB
     Indication: Psoriasis
     Dosage: INJECT 300 MG UNDER THE SKIN (SUBCUTANEOUS INJECTION) ONCE A MONTH
     Route: 058
     Dates: start: 20230601
  2. ALBUTEROL AER HFA [Concomitant]
  3. ALENDRONATE [Concomitant]
     Active Substance: ALENDRONATE SODIUM
  4. AUG BETAMET CRE 0.05% [Concomitant]
  5. CYCLOBENZAPR TAB 7.5MG [Concomitant]
  6. ESCITALOPRAM [Concomitant]
     Active Substance: ESCITALOPRAM OXALATE
  7. GABAPENTIN [Concomitant]
     Active Substance: GABAPENTIN
  8. HYDROCO/APAP TAB 7.5-325 [Concomitant]
  9. LASIX TAB 40MG [Concomitant]
  10. LEXAPRO TAB 10MG [Concomitant]
  11. MELOXICAM [Concomitant]
     Active Substance: MELOXICAM

REACTIONS (1)
  - Hospitalisation [None]
